FAERS Safety Report 13050966 (Version 1)
Quarter: 2016Q4

REPORT INFORMATION
  Report Type: Spontaneous
  Country: US (occurrence: US)
  Receive Date: 20161220
  Receipt Date: 20161220
  Transmission Date: 20170207
  Serious: Yes (Hospitalization)
  Sender: FDA-Public Use
  Company Number: None

PATIENT
  Age: 64 Year
  Sex: Male

DRUGS (12)
  1. ABACA/LAMIVU TAB 600-300MG [Suspect]
     Active Substance: ABACAVIR\LAMIVUDINE
     Indication: HIV INFECTION
  2. NORVIR [Suspect]
     Active Substance: RITONAVIR
     Indication: HIV INFECTION
  3. NORVIR [Suspect]
     Active Substance: RITONAVIR
     Indication: THYROID DISORDER
  4. REYATAZ [Suspect]
     Active Substance: ATAZANAVIR SULFATE
     Indication: HIV INFECTION
  5. NORVIR [Suspect]
     Active Substance: RITONAVIR
     Indication: HYPERLIPIDAEMIA
  6. REYATAZ [Suspect]
     Active Substance: ATAZANAVIR SULFATE
     Indication: THYROID DISORDER
  7. ABACA/LAMIVU TAB 600-300MG [Suspect]
     Active Substance: ABACAVIR\LAMIVUDINE
     Indication: HYPERLIPIDAEMIA
  8. REYATAZ [Suspect]
     Active Substance: ATAZANAVIR SULFATE
     Indication: ESSENTIAL HYPERTENSION
  9. ABACA/LAMIVU TAB 600-300MG [Suspect]
     Active Substance: ABACAVIR\LAMIVUDINE
     Indication: THYROID DISORDER
  10. REYATAZ [Suspect]
     Active Substance: ATAZANAVIR SULFATE
     Indication: HYPERLIPIDAEMIA
  11. NORVIR [Suspect]
     Active Substance: RITONAVIR
     Indication: ESSENTIAL HYPERTENSION
  12. ABACA/LAMIVU TAB 600-300MG [Suspect]
     Active Substance: ABACAVIR\LAMIVUDINE
     Indication: ESSENTIAL HYPERTENSION

REACTIONS (1)
  - Hypotension [None]

NARRATIVE: CASE EVENT DATE: 20161213
